FAERS Safety Report 9381118 (Version 1)
Quarter: 2013Q3

REPORT INFORMATION
  Report Type: Spontaneous
  Country: US (occurrence: US)
  Receive Date: 20130703
  Receipt Date: 20130703
  Transmission Date: 20140515
  Serious: No
  Sender: FDA-Public Use
  Company Number: US-BIOGENIDEC-2013BI058523

PATIENT
  Sex: 0

DRUGS (1)
  1. AVONEX [Suspect]
     Indication: MULTIPLE SCLEROSIS
     Route: 030
     Dates: start: 20130214

REACTIONS (5)
  - General symptom [Not Recovered/Not Resolved]
  - Burning sensation [Recovered/Resolved]
  - Tremor [Not Recovered/Not Resolved]
  - Muscle twitching [Not Recovered/Not Resolved]
  - Injection site pain [Recovered/Resolved]
